FAERS Safety Report 8357250-1 (Version None)
Quarter: 2012Q2

REPORT INFORMATION
  Report Type: 
  Country: None (occurrence: None)
  Receive Date: 20120514
  Receipt Date: 20120507
  Transmission Date: 20120825
  Serious: Yes (Hospitalization, Other)
  Sender: FDA-Public Use
  Company Number: PHHY2008BR20172

PATIENT
  Sex: Male
  Weight: 70 kg

DRUGS (19)
  1. HALDOL [Concomitant]
     Indication: SCHIZOPHRENIA
     Dosage: 1 TABLET IN THE MORNING AND 1 TABLET AT NIGHT
     Route: 048
  2. MELLARIL [Concomitant]
     Indication: SCHIZOPHRENIA
  3. CLOZAPINE [Suspect]
     Dosage: 250 MG, UNK
  4. PHENERGAN [Concomitant]
     Indication: SCHIZOPHRENIA
     Dosage: 25 MG, BID
     Route: 048
  5. HALDOL [Concomitant]
  6. CLOZAPINE [Suspect]
     Dosage: 350 MG, UNK
  7. AMPLICTIL [Concomitant]
     Indication: SCHIZOPHRENIA
     Dosage: 1 DF, UNK
  8. NEOZINE [Concomitant]
  9. CLOZAPINE [Suspect]
     Dosage: 275 MG, UNK
  10. CLOZAPINE [Suspect]
     Indication: SCHIZOPHRENIA
     Dosage: 100 MG, UNK
     Dates: start: 20110527
  11. CLOZAPINE [Suspect]
     Dosage: 3 DF, QD
     Route: 048
     Dates: start: 20080501
  12. CLOZAPINE [Suspect]
     Dosage: 300 MG, UNK
  13. CLOZAPINE [Suspect]
     Dosage: 400 MG, QD
     Dates: start: 19940101
  14. MALLOROL RETARD [Concomitant]
  15. ZYPREXA [Concomitant]
  16. CLOZAPINE [Suspect]
     Indication: PARANOIA
     Dosage: 275 MG, UNK
     Route: 048
     Dates: start: 19940101
  17. CLOZAPINE [Suspect]
     Dosage: 4 DF, UNK
  18. RISPERDAL [Concomitant]
  19. AMPLICTIL [Concomitant]
     Dosage: 4 DF, QD

REACTIONS (13)
  - PYROMANIA [None]
  - ABNORMAL BEHAVIOUR [None]
  - RESTLESSNESS [None]
  - AGGRESSION [None]
  - HALLUCINATION [None]
  - CONFUSIONAL STATE [None]
  - AGITATION [None]
  - SCHIZOPHRENIA [None]
  - AMNESIA [None]
  - DRUG INEFFECTIVE [None]
  - SELF INJURIOUS BEHAVIOUR [None]
  - VIOLENCE-RELATED SYMPTOM [None]
  - TOOTH DISORDER [None]
